FAERS Safety Report 8776930 (Version 1)
Quarter: 2012Q4

REPORT INFORMATION
  Report Type: 
  Country: US (occurrence: US)
  Receive Date: 20120911
  Receipt Date: 20120911
  Transmission Date: 20130627
  Serious: Yes (Hospitalization)
  Sender: FDA-Public Use
  Company Number: US-GILEAD-2012-0060590

PATIENT
  Sex: Female

DRUGS (7)
  1. LETAIRIS [Suspect]
     Indication: PULMONARY ARTERIAL HYPERTENSION
     Dosage: 5 mg, UNK
     Route: 048
     Dates: start: 20120823
  2. FLUTICASONE W/SALMETEROL [Concomitant]
  3. TIOTROPIUM [Concomitant]
  4. ALPRAZOLAM [Concomitant]
  5. GLIPIZIDE [Concomitant]
  6. TADALAFIL [Concomitant]
  7. ALBUTEROL                          /00139501/ [Concomitant]

REACTIONS (4)
  - Chest pain [Unknown]
  - Fluid overload [Unknown]
  - Oedema [Recovered/Resolved]
  - Dyspnoea [Recovered/Resolved]
